FAERS Safety Report 19754759 (Version 1)
Quarter: 2021Q3

REPORT INFORMATION
  Report Type: Spontaneous
  Country: FR (occurrence: FR)
  Receive Date: 20210827
  Receipt Date: 20210827
  Transmission Date: 20211014
  Serious: Yes (Hospitalization, Other)
  Sender: FDA-Public Use
  Company Number: FR-GLAXOSMITHKLINE-FR2021179745

PATIENT
  Age: 26 Year
  Sex: Female
  Weight: 80 kg

DRUGS (2)
  1. TEGRETOL [Suspect]
     Active Substance: CARBAMAZEPINE
     Indication: EPILEPSY
     Dosage: 1 G, QD, (IN THE LONG TERM)
     Route: 048
  2. LAMICTAL [Suspect]
     Active Substance: LAMOTRIGINE
     Indication: EPILEPSY
     Dosage: 500 MG, QD, (IN THE LONG TERM)
     Route: 048

REACTIONS (1)
  - Third stage postpartum haemorrhage [Recovered/Resolved]

NARRATIVE: CASE EVENT DATE: 20210401
